FAERS Safety Report 15074151 (Version 1)
Quarter: 2018Q3

REPORT INFORMATION
  Report Type: Spontaneous
  Country: LS (occurrence: LS)
  Receive Date: 20180627
  Receipt Date: 20180627
  Transmission Date: 20181010
  Serious: Yes (Death, Hospitalization, Other)
  Sender: FDA-Public Use
  Company Number: LS-JACOBUS PHARMACEUTICAL COMPANY, INC.-2050045

PATIENT
  Age: 44 Year
  Sex: Male
  Weight: 47.09 kg

DRUGS (2)
  1. DELAMANID TABLETS [Suspect]
     Active Substance: DELAMANID
     Dates: start: 20180317, end: 20180323
  2. PASER [Suspect]
     Active Substance: AMINOSALICYLIC ACID
     Dates: start: 20180321, end: 20180410

REACTIONS (9)
  - Vomiting [Unknown]
  - Abdominal distension [Unknown]
  - General physical health deterioration [Unknown]
  - Infection [Unknown]
  - Pancytopenia [Unknown]
  - Respiratory failure [Unknown]
  - Renal injury [Unknown]
  - Confusional state [Unknown]
  - Progressive multifocal leukoencephalopathy [Fatal]
